FAERS Safety Report 25674412 (Version 1)
Quarter: 2025Q3

REPORT INFORMATION
  Report Type: Spontaneous
  Country: US (occurrence: US)
  Receive Date: 20250813
  Receipt Date: 20250813
  Transmission Date: 20251020
  Serious: Yes (Other)
  Sender: COOPERSURGICAL
  Company Number: US-COOPERSURGICAL, INC.-2025CPS005462

PATIENT
  Sex: Female
  Weight: 40.363 kg

DRUGS (1)
  1. PARAGARD T 380A [Suspect]
     Active Substance: COPPER
     Indication: Contraception
     Route: 015
     Dates: start: 20151118

REACTIONS (18)
  - Surgery [Recovered/Resolved]
  - Haemorrhagic ovarian cyst [Unknown]
  - Ovarian cyst [Recovered/Resolved]
  - Device breakage [Recovered/Resolved]
  - Foreign body in urogenital tract [Recovered/Resolved]
  - Complication of device removal [Recovered/Resolved]
  - Emotional distress [Unknown]
  - Dysuria [Recovered/Resolved]
  - Endometriosis [Unknown]
  - Back pain [Unknown]
  - Pelvic pain [Unknown]
  - Dysmenorrhoea [Recovered/Resolved]
  - Heavy menstrual bleeding [Recovered/Resolved]
  - Device dislocation [Recovered/Resolved]
  - Dyspareunia [Unknown]
  - Pain [Unknown]
  - Menstruation irregular [Unknown]
  - Unevaluable event [Unknown]

NARRATIVE: CASE EVENT DATE: 20160101
